FAERS Safety Report 24612823 (Version 4)
Quarter: 2025Q3

REPORT INFORMATION
  Report Type: Spontaneous
  Country: CA (occurrence: CA)
  Receive Date: 20241113
  Receipt Date: 20250926
  Transmission Date: 20251021
  Serious: Yes (Hospitalization, Other)
  Sender: Haleon PLC
  Company Number: CA-002147023-NVSC2023CA023717

PATIENT
  Age: 75 Year
  Sex: Female
  Weight: 70 kg

DRUGS (224)
  1. DICLOFENAC SODIUM [Suspect]
     Active Substance: DICLOFENAC SODIUM
     Indication: Arthralgia
  2. DICLOFENAC SODIUM [Suspect]
     Active Substance: DICLOFENAC SODIUM
  3. DICLOFENAC SODIUM [Suspect]
     Active Substance: DICLOFENAC SODIUM
  4. DICLOFENAC SODIUM [Suspect]
     Active Substance: DICLOFENAC SODIUM
  5. ADVIL [Suspect]
     Active Substance: IBUPROFEN
     Indication: Arthralgia
  6. ADVIL [Suspect]
     Active Substance: IBUPROFEN
  7. ATORVASTATIN [Suspect]
     Active Substance: ATORVASTATIN
     Indication: Dyslipidaemia
  8. ATORVASTATIN [Suspect]
     Active Substance: ATORVASTATIN
  9. BRINZOLAMIDE\TIMOLOL MALEATE [Suspect]
     Active Substance: BRINZOLAMIDE\TIMOLOL MALEATE
     Indication: Glaucoma
  10. BRINZOLAMIDE\TIMOLOL MALEATE [Suspect]
     Active Substance: BRINZOLAMIDE\TIMOLOL MALEATE
  11. BRINZOLAMIDE\TIMOLOL MALEATE [Suspect]
     Active Substance: BRINZOLAMIDE\TIMOLOL MALEATE
  12. ESTRADIOL [Suspect]
     Active Substance: ESTRADIOL
     Indication: Menopausal symptoms
  13. ESTRADIOL [Suspect]
     Active Substance: ESTRADIOL
  14. ESTRADIOL [Suspect]
     Active Substance: ESTRADIOL
  15. BRINZOLAMIDE\TIMOLOL [Suspect]
     Active Substance: BRINZOLAMIDE\TIMOLOL
     Indication: Glaucoma
  16. BRINZOLAMIDE\TIMOLOL [Suspect]
     Active Substance: BRINZOLAMIDE\TIMOLOL
  17. BRINZOLAMIDE\TIMOLOL [Suspect]
     Active Substance: BRINZOLAMIDE\TIMOLOL
  18. BRINZOLAMIDE\TIMOLOL [Suspect]
     Active Substance: BRINZOLAMIDE\TIMOLOL
  19. BRINZOLAMIDE\TIMOLOL [Suspect]
     Active Substance: BRINZOLAMIDE\TIMOLOL
  20. CHOLECALCIFEROL [Suspect]
     Active Substance: CHOLECALCIFEROL
     Indication: Product used for unknown indication
  21. CLONAZEPAM [Suspect]
     Active Substance: CLONAZEPAM
     Indication: Product used for unknown indication
  22. CLONAZEPAM [Suspect]
     Active Substance: CLONAZEPAM
  23. CLONAZEPAM [Suspect]
     Active Substance: CLONAZEPAM
  24. CLONAZEPAM [Suspect]
     Active Substance: CLONAZEPAM
  25. DICLOFENAC [Concomitant]
     Active Substance: DICLOFENAC
     Indication: Product used for unknown indication
  26. IPRATROPIUM [Suspect]
     Active Substance: IPRATROPIUM
     Indication: Arthralgia
  27. IPRATROPIUM [Suspect]
     Active Substance: IPRATROPIUM
     Indication: Rhinitis
     Route: 045
  28. IPRATROPIUM [Suspect]
     Active Substance: IPRATROPIUM
  29. IPRATROPIUM [Suspect]
     Active Substance: IPRATROPIUM
     Route: 045
  30. IPRATROPIUM [Suspect]
     Active Substance: IPRATROPIUM
  31. IPRATROPIUM [Suspect]
     Active Substance: IPRATROPIUM
     Route: 045
  32. IPRATROPIUM [Suspect]
     Active Substance: IPRATROPIUM
     Route: 045
  33. IPRATROPIUM [Suspect]
     Active Substance: IPRATROPIUM
  34. IPRATROPIUM [Suspect]
     Active Substance: IPRATROPIUM
     Route: 045
  35. IPRATROPIUM [Suspect]
     Active Substance: IPRATROPIUM
     Route: 045
  36. IPRATROPIUM [Suspect]
     Active Substance: IPRATROPIUM
     Route: 045
  37. IPRATROPIUM [Suspect]
     Active Substance: IPRATROPIUM
     Route: 045
  38. IPRATROPIUM [Suspect]
     Active Substance: IPRATROPIUM
     Route: 045
  39. IPRATROPIUM [Suspect]
     Active Substance: IPRATROPIUM
     Route: 045
  40. IPRATROPIUM [Suspect]
     Active Substance: IPRATROPIUM
     Route: 045
  41. IPRATROPIUM BROMIDE [Suspect]
     Active Substance: IPRATROPIUM BROMIDE
     Indication: Rhinitis
  42. IPRATROPIUM BROMIDE [Suspect]
     Active Substance: IPRATROPIUM BROMIDE
     Indication: Product used for unknown indication
  43. TELMISARTAN [Suspect]
     Active Substance: TELMISARTAN
     Indication: Hypertension
  44. TELMISARTAN [Suspect]
     Active Substance: TELMISARTAN
     Indication: Glaucoma
  45. TELMISARTAN [Suspect]
     Active Substance: TELMISARTAN
  46. TELMISARTAN [Suspect]
     Active Substance: TELMISARTAN
  47. TELMISARTAN [Suspect]
     Active Substance: TELMISARTAN
  48. TELMISARTAN [Suspect]
     Active Substance: TELMISARTAN
  49. TELMISARTAN [Suspect]
     Active Substance: TELMISARTAN
  50. TELMISARTAN [Suspect]
     Active Substance: TELMISARTAN
  51. ATORVASTATIN [Suspect]
     Active Substance: ATORVASTATIN
     Indication: Dyslipidaemia
  52. ATORVASTATIN [Suspect]
     Active Substance: ATORVASTATIN
  53. ATORVASTATIN [Suspect]
     Active Substance: ATORVASTATIN
  54. AMOXICILLIN [Suspect]
     Active Substance: AMOXICILLIN
     Indication: Sinusitis
  55. AMOXICILLIN [Suspect]
     Active Substance: AMOXICILLIN
  56. NICOTINAMIDE [Suspect]
     Active Substance: NIACINAMIDE
     Indication: Product used for unknown indication
  57. PSEUDOEPHEDRINE [Suspect]
     Active Substance: PSEUDOEPHEDRINE
     Indication: Product used for unknown indication
  58. RIBOFLAVIN [Suspect]
     Active Substance: RIBOFLAVIN
     Indication: Product used for unknown indication
  59. VITAMIN A [Suspect]
     Active Substance: VITAMIN A
     Indication: Product used for unknown indication
  60. ERGOCALCIFEROL [Suspect]
     Active Substance: ERGOCALCIFEROL
     Indication: Product used for unknown indication
  61. PSEUDOEPHEDRINE HYDROCHLORIDE [Suspect]
     Active Substance: PSEUDOEPHEDRINE HYDROCHLORIDE
     Indication: Product used for unknown indication
  62. PSEUDOEPHEDRINE HYDROCHLORIDE [Suspect]
     Active Substance: PSEUDOEPHEDRINE HYDROCHLORIDE
  63. PSEUDOEPHEDRINE HYDROCHLORIDE [Suspect]
     Active Substance: PSEUDOEPHEDRINE HYDROCHLORIDE
  64. VITAMIN C [Suspect]
     Active Substance: ASCORBIC ACID
     Indication: Product used for unknown indication
  65. VITAMIN D3 [Suspect]
     Active Substance: CHOLECALCIFEROL
     Indication: Product used for unknown indication
  66. VITAMIN D3 [Suspect]
     Active Substance: CHOLECALCIFEROL
  67. VITAMIN D3 [Suspect]
     Active Substance: CHOLECALCIFEROL
  68. VITAMIN D3 [Suspect]
     Active Substance: CHOLECALCIFEROL
  69. VITAMIN D3 [Suspect]
     Active Substance: CHOLECALCIFEROL
  70. VITAMIN D3 [Suspect]
     Active Substance: CHOLECALCIFEROL
  71. VITAMIN D3 [Suspect]
     Active Substance: CHOLECALCIFEROL
  72. VITAMIN D3 [Suspect]
     Active Substance: CHOLECALCIFEROL
  73. VITAMIN D3 [Suspect]
     Active Substance: CHOLECALCIFEROL
  74. Paracetamol, pseudoephedrine hcl [Concomitant]
     Indication: Product used for unknown indication
  75. BRINZOLAMIDE\TIMOLOL [Suspect]
     Active Substance: BRINZOLAMIDE\TIMOLOL
     Indication: Glaucoma
  76. BRINZOLAMIDE\TIMOLOL [Suspect]
     Active Substance: BRINZOLAMIDE\TIMOLOL
  77. ESTRADIOL [Suspect]
     Active Substance: ESTRADIOL
     Indication: Product used for unknown indication
  78. ESTRADIOL [Suspect]
     Active Substance: ESTRADIOL
     Route: 062
  79. AMOXICILLIN [Concomitant]
     Active Substance: AMOXICILLIN
     Indication: Product used for unknown indication
  80. AMOXICILLIN [Concomitant]
     Active Substance: AMOXICILLIN
     Indication: Sinusitis
  81. ATORVASTATIN CALCIUM [Suspect]
     Active Substance: ATORVASTATIN CALCIUM
     Indication: Dyslipidaemia
  82. ATORVASTATIN CALCIUM [Suspect]
     Active Substance: ATORVASTATIN CALCIUM
     Indication: Product used for unknown indication
  83. ATORVASTATIN CALCIUM [Suspect]
     Active Substance: ATORVASTATIN CALCIUM
  84. ATORVASTATIN CALCIUM [Suspect]
     Active Substance: ATORVASTATIN CALCIUM
  85. ATORVASTATIN CALCIUM [Suspect]
     Active Substance: ATORVASTATIN CALCIUM
  86. IPRATROPIUM [Suspect]
     Active Substance: IPRATROPIUM
     Indication: Rhinitis
     Route: 045
  87. IPRATROPIUM [Suspect]
     Active Substance: IPRATROPIUM
  88. IPRATROPIUM [Suspect]
     Active Substance: IPRATROPIUM
     Route: 045
  89. IPRATROPIUM [Suspect]
     Active Substance: IPRATROPIUM
     Route: 045
  90. IPRATROPIUM [Suspect]
     Active Substance: IPRATROPIUM
  91. IPRATROPIUM [Suspect]
     Active Substance: IPRATROPIUM
     Route: 045
  92. IPRATROPIUM [Suspect]
     Active Substance: IPRATROPIUM
     Route: 045
  93. IPRATROPIUM [Suspect]
     Active Substance: IPRATROPIUM
     Route: 045
  94. ZOPICLONE [Suspect]
     Active Substance: ZOPICLONE
     Indication: Insomnia
  95. ZOPICLONE [Suspect]
     Active Substance: ZOPICLONE
     Indication: Arthralgia
  96. ZOPICLONE [Suspect]
     Active Substance: ZOPICLONE
     Indication: Sinusitis
  97. ZOPICLONE [Suspect]
     Active Substance: ZOPICLONE
     Indication: Dyslipidaemia
  98. ZOPICLONE [Suspect]
     Active Substance: ZOPICLONE
  99. ZOPICLONE [Suspect]
     Active Substance: ZOPICLONE
  100. ZOPICLONE [Suspect]
     Active Substance: ZOPICLONE
  101. ZOPICLONE [Suspect]
     Active Substance: ZOPICLONE
  102. ZOPICLONE [Suspect]
     Active Substance: ZOPICLONE
  103. ZOPICLONE [Suspect]
     Active Substance: ZOPICLONE
  104. ZOPICLONE [Suspect]
     Active Substance: ZOPICLONE
  105. PYRIDOXINE HYDROCHLORIDE [Suspect]
     Active Substance: PYRIDOXINE HYDROCHLORIDE
     Indication: Product used for unknown indication
  106. PYRIDOXINE HYDROCHLORIDE [Suspect]
     Active Substance: PYRIDOXINE HYDROCHLORIDE
  107. PYRIDOXINE HYDROCHLORIDE [Suspect]
     Active Substance: PYRIDOXINE HYDROCHLORIDE
  108. PYRIDOXINE HYDROCHLORIDE [Suspect]
     Active Substance: PYRIDOXINE HYDROCHLORIDE
  109. PYRIDOXINE HYDROCHLORIDE [Suspect]
     Active Substance: PYRIDOXINE HYDROCHLORIDE
  110. ESTRADIOL [Suspect]
     Active Substance: ESTRADIOL
     Indication: Menopausal symptoms
  111. ESTRADIOL [Suspect]
     Active Substance: ESTRADIOL
     Indication: Arthralgia
  112. ESTRADIOL [Suspect]
     Active Substance: ESTRADIOL
  113. ATORVASTATIN CALCIUM [Concomitant]
     Active Substance: ATORVASTATIN CALCIUM
     Indication: Dyslipidaemia
  114. ATORVASTATIN CALCIUM [Concomitant]
     Active Substance: ATORVASTATIN CALCIUM
     Indication: Product used for unknown indication
  115. BRINZOLAMIDE [Suspect]
     Active Substance: BRINZOLAMIDE
     Indication: Glaucoma
  116. BRINZOLAMIDE [Suspect]
     Active Substance: BRINZOLAMIDE
  117. BRINZOLAMIDE [Suspect]
     Active Substance: BRINZOLAMIDE
  118. ADVIL [Suspect]
     Active Substance: IBUPROFEN
     Indication: Arthralgia
  119. ADVIL [Suspect]
     Active Substance: IBUPROFEN
  120. ADVIL [Suspect]
     Active Substance: IBUPROFEN
  121. CHOLECALCIFEROL [Concomitant]
     Active Substance: CHOLECALCIFEROL
     Indication: Product used for unknown indication
  122. NAPROXEN SODIUM [Concomitant]
     Active Substance: NAPROXEN SODIUM
     Indication: Arthralgia
  123. NAPROXEN SODIUM [Concomitant]
     Active Substance: NAPROXEN SODIUM
     Indication: Product used for unknown indication
  124. AZOPT [Suspect]
     Active Substance: BRINZOLAMIDE
     Indication: Glaucoma
  125. AZOPT [Suspect]
     Active Substance: BRINZOLAMIDE
  126. CLONAZEPAM [Suspect]
     Active Substance: CLONAZEPAM
     Indication: Product used for unknown indication
  127. CLONAZEPAM [Suspect]
     Active Substance: CLONAZEPAM
  128. CLONAZEPAM [Suspect]
     Active Substance: CLONAZEPAM
  129. PREGABALIN [Suspect]
     Active Substance: PREGABALIN
     Indication: Arthralgia
  130. PREGABALIN [Suspect]
     Active Substance: PREGABALIN
  131. PREGABALIN [Suspect]
     Active Substance: PREGABALIN
  132. PREGABALIN [Suspect]
     Active Substance: PREGABALIN
  133. PREGABALIN [Suspect]
     Active Substance: PREGABALIN
  134. PREGABALIN [Suspect]
     Active Substance: PREGABALIN
  135. PREGABALIN [Suspect]
     Active Substance: PREGABALIN
  136. LATANOPROST [Suspect]
     Active Substance: LATANOPROST
     Indication: Glaucoma
  137. LATANOPROST [Suspect]
     Active Substance: LATANOPROST
  138. LATANOPROST [Suspect]
     Active Substance: LATANOPROST
  139. LATANOPROST [Suspect]
     Active Substance: LATANOPROST
  140. LATANOPROST [Suspect]
     Active Substance: LATANOPROST
  141. LATANOPROST [Suspect]
     Active Substance: LATANOPROST
  142. LATANOPROST [Suspect]
     Active Substance: LATANOPROST
  143. LATANOPROST [Suspect]
     Active Substance: LATANOPROST
  144. LATANOPROST [Suspect]
     Active Substance: LATANOPROST
  145. LATANOPROST [Suspect]
     Active Substance: LATANOPROST
  146. LATANOPROST [Suspect]
     Active Substance: LATANOPROST
  147. LATANOPROST [Suspect]
     Active Substance: LATANOPROST
  148. LATANOPROST [Suspect]
     Active Substance: LATANOPROST
  149. LATANOPROST [Suspect]
     Active Substance: LATANOPROST
  150. LATANOPROST [Suspect]
     Active Substance: LATANOPROST
  151. LATANOPROST [Suspect]
     Active Substance: LATANOPROST
  152. LATANOPROST [Suspect]
     Active Substance: LATANOPROST
  153. LATANOPROST [Suspect]
     Active Substance: LATANOPROST
  154. LATANOPROST [Suspect]
     Active Substance: LATANOPROST
  155. LATANOPROST [Suspect]
     Active Substance: LATANOPROST
  156. LATANOPROST [Suspect]
     Active Substance: LATANOPROST
  157. ACETAMINOPHEN [Concomitant]
     Active Substance: ACETAMINOPHEN
     Indication: Product used for unknown indication
  158. DICLOFENAC [Suspect]
     Active Substance: DICLOFENAC
     Indication: Product used for unknown indication
  159. DICLOFENAC [Suspect]
     Active Substance: DICLOFENAC
     Indication: Arthralgia
  160. DICLOFENAC [Concomitant]
     Active Substance: DICLOFENAC
     Indication: Product used for unknown indication
  161. TUMS [Suspect]
     Active Substance: CALCIUM CARBONATE
     Indication: Product used for unknown indication
  162. TUMS [Suspect]
     Active Substance: CALCIUM CARBONATE
  163. TUMS [Suspect]
     Active Substance: CALCIUM CARBONATE
  164. TELMISARTAN [Suspect]
     Active Substance: TELMISARTAN
     Indication: Hypertension
  165. TELMISARTAN [Suspect]
     Active Substance: TELMISARTAN
  166. TELMISARTAN [Suspect]
     Active Substance: TELMISARTAN
  167. TELMISARTAN [Suspect]
     Active Substance: TELMISARTAN
  168. VITAMIN B6 [Suspect]
     Active Substance: PYRIDOXINE HYDROCHLORIDE
     Indication: Product used for unknown indication
  169. PYRIDOXINE [Concomitant]
     Active Substance: PYRIDOXINE
     Indication: Product used for unknown indication
  170. PYRIDOXINE [Concomitant]
     Active Substance: PYRIDOXINE
  171. PYRIDOXINE [Concomitant]
     Active Substance: PYRIDOXINE
  172. PYRIDOXINE [Concomitant]
     Active Substance: PYRIDOXINE
  173. PYRIDOXINE [Concomitant]
     Active Substance: PYRIDOXINE
  174. PYRIDOXINE HYDROCHLORIDE [Concomitant]
     Active Substance: PYRIDOXINE HYDROCHLORIDE
     Indication: Product used for unknown indication
  175. GABAPENTIN [Suspect]
     Active Substance: GABAPENTIN
     Indication: Arthralgia
  176. GABAPENTIN [Suspect]
     Active Substance: GABAPENTIN
  177. GABAPENTIN [Suspect]
     Active Substance: GABAPENTIN
  178. GABAPENTIN [Suspect]
     Active Substance: GABAPENTIN
  179. NAPROXEN [Suspect]
     Active Substance: NAPROXEN
     Indication: Arthralgia
  180. ACETAMINOPHEN [Suspect]
     Active Substance: ACETAMINOPHEN
     Indication: Product used for unknown indication
  181. ACETAMINOPHEN [Suspect]
     Active Substance: ACETAMINOPHEN
     Indication: Rhinitis
  182. ACETAMINOPHEN [Suspect]
     Active Substance: ACETAMINOPHEN
  183. ACETAMINOPHEN [Suspect]
     Active Substance: ACETAMINOPHEN
  184. ACETAMINOPHEN [Suspect]
     Active Substance: ACETAMINOPHEN
  185. ACETAMINOPHEN [Suspect]
     Active Substance: ACETAMINOPHEN
  186. ACETAMINOPHEN [Suspect]
     Active Substance: ACETAMINOPHEN
  187. ACETAMINOPHEN [Suspect]
     Active Substance: ACETAMINOPHEN
  188. AMOXICILLIN TRIHYDRATE [Suspect]
     Active Substance: AMOXICILLIN
     Indication: Sinusitis
  189. BRINZOLAMIDE\TIMOLOL MALEATE [Suspect]
     Active Substance: BRINZOLAMIDE\TIMOLOL MALEATE
     Indication: Glaucoma
  190. BRINZOLAMIDE\TIMOLOL MALEATE [Suspect]
     Active Substance: BRINZOLAMIDE\TIMOLOL MALEATE
  191. BRINZOLAMIDE\TIMOLOL MALEATE [Suspect]
     Active Substance: BRINZOLAMIDE\TIMOLOL MALEATE
  192. BRINZOLAMIDE\TIMOLOL MALEATE [Suspect]
     Active Substance: BRINZOLAMIDE\TIMOLOL MALEATE
  193. BRINZOLAMIDE\TIMOLOL MALEATE [Suspect]
     Active Substance: BRINZOLAMIDE\TIMOLOL MALEATE
  194. CHOLECALCIFEROL [Suspect]
     Active Substance: CHOLECALCIFEROL
     Indication: Product used for unknown indication
  195. CHOLECALCIFEROL [Suspect]
     Active Substance: CHOLECALCIFEROL
  196. DEXPANTHENOL [Suspect]
     Active Substance: DEXPANTHENOL
     Indication: Product used for unknown indication
  197. IPRATROPIUM BROMIDE [Concomitant]
     Active Substance: IPRATROPIUM BROMIDE
     Indication: Rhinitis
  198. THIAMINE HYDROCHLORIDE [Suspect]
     Active Substance: THIAMINE HYDROCHLORIDE
     Indication: Product used for unknown indication
  199. ESTRADIOL [Suspect]
     Active Substance: ESTRADIOL
     Indication: Arthralgia
  200. ESTRADIOL [Suspect]
     Active Substance: ESTRADIOL
     Indication: Menopausal symptoms
  201. ESTRADIOL [Suspect]
     Active Substance: ESTRADIOL
  202. ESTRADIOL [Suspect]
     Active Substance: ESTRADIOL
  203. ESTRADIOL [Suspect]
     Active Substance: ESTRADIOL
  204. FOLIC ACID [Suspect]
     Active Substance: FOLIC ACID
     Indication: Product used for unknown indication
  205. ACETAMINOPHEN\PSEUDOEPHEDRINE [Concomitant]
     Active Substance: ACETAMINOPHEN\PSEUDOEPHEDRINE
     Indication: Product used for unknown indication
  206. ATORVASTATIN CALCIUM [Suspect]
     Active Substance: ATORVASTATIN CALCIUM
     Indication: Dyslipidaemia
  207. ATORVASTATIN CALCIUM [Suspect]
     Active Substance: ATORVASTATIN CALCIUM
  208. ATORVASTATIN CALCIUM [Suspect]
     Active Substance: ATORVASTATIN CALCIUM
  209. ATORVASTATIN CALCIUM [Suspect]
     Active Substance: ATORVASTATIN CALCIUM
  210. DIETARY SUPPLEMENT [Suspect]
     Active Substance: DIETARY SUPPLEMENT
     Indication: Product used for unknown indication
  211. DIETARY SUPPLEMENT [Suspect]
     Active Substance: DIETARY SUPPLEMENT
  212. DIETARY SUPPLEMENT [Suspect]
     Active Substance: DIETARY SUPPLEMENT
  213. DIETARY SUPPLEMENT [Suspect]
     Active Substance: DIETARY SUPPLEMENT
  214. DIETARY SUPPLEMENT [Suspect]
     Active Substance: DIETARY SUPPLEMENT
  215. DIETARY SUPPLEMENT [Suspect]
     Active Substance: DIETARY SUPPLEMENT
  216. BRINZOLAMIDE\TIMOLOL MALEATE [Suspect]
     Active Substance: BRINZOLAMIDE\TIMOLOL MALEATE
     Indication: Product used for unknown indication
  217. BRINZOLAMIDE\TIMOLOL MALEATE [Suspect]
     Active Substance: BRINZOLAMIDE\TIMOLOL MALEATE
  218. ACETAMINOPHEN\CODEINE PHOSPHATE [Concomitant]
     Active Substance: ACETAMINOPHEN\CODEINE PHOSPHATE
     Indication: Product used for unknown indication
  219. Paracetamol; Pseudoephedrine hydrochloride [Concomitant]
     Indication: Product used for unknown indication
  220. PYRIDOXINE HYDROCHLORIDE [Concomitant]
     Active Substance: PYRIDOXINE HYDROCHLORIDE
     Indication: Product used for unknown indication
  221. PREGABALIN [Suspect]
     Active Substance: PREGABALIN
     Indication: Arthralgia
  222. ESTRADIOL [Suspect]
     Active Substance: ESTRADIOL
     Indication: Menopausal symptoms
  223. ESTRADIOL [Suspect]
     Active Substance: ESTRADIOL
     Indication: Arthralgia
  224. ESTRADIOL [Suspect]
     Active Substance: ESTRADIOL

REACTIONS (8)
  - Toxic epidermal necrolysis [Recovered/Resolved]
  - Epidermal necrosis [Recovered/Resolved]
  - Rash papular [Recovered/Resolved]
  - Rash erythematous [Recovered/Resolved]
  - Haemoglobin decreased [Recovered/Resolved]
  - Product use in unapproved indication [Recovered/Resolved]
  - Off label use [Recovered/Resolved]
  - Nikolsky^s sign test [Recovered/Resolved]
